FAERS Safety Report 9815777 (Version 1)
Quarter: 2014Q1

REPORT INFORMATION
  Report Type: Spontaneous
  Country: US (occurrence: None)
  Receive Date: 20140110
  Receipt Date: 20140110
  Transmission Date: 20141002
  Serious: Yes (Hospitalization, Other)
  Sender: FDA-Public Use
  Company Number: 2013US00946

PATIENT
  Age: 52 Year
  Sex: Male

DRUGS (2)
  1. VALACYCLOVIR HYDROCHLORIDE [Suspect]
     Indication: HERPES ZOSTER
  2. ACYCLOVIR [Suspect]
     Route: 042

REACTIONS (7)
  - Status epilepticus [None]
  - Irritability [None]
  - Hallucination [None]
  - Disorientation [None]
  - Somnolence [None]
  - Neurotoxicity [None]
  - Haemodialysis [None]
